FAERS Safety Report 9560151 (Version 1)
Quarter: 2013Q3

REPORT INFORMATION
  Report Type: Spontaneous
  Country: US (occurrence: None)
  Receive Date: 20130909
  Receipt Date: 20130909
  Transmission Date: 20140515
  Serious: Yes (Other)
  Sender: FDA-Public Use
  Company Number: 380616

PATIENT
  Age: 56 Year
  Sex: 0

DRUGS (5)
  1. VICTOZA (LIRAGLUTIDE) SOLUTION FOR INJECTION, 6MG/ML [Suspect]
     Indication: DIABETES MELLITUS
     Dosage: 1 NEEDLE, QD, SUBCUTANEOUS
     Route: 058
     Dates: start: 20120803
  2. NOVOFINE 32 [Concomitant]
  3. MECLIZINE HCL (MECLOZINE HYDROCHLORIDE) [Concomitant]
  4. AMBIEN (ZOLPIDEM TARTRATE) [Concomitant]
  5. VICODIN (HYDROCODONE BITARTRATE, PARACETAMOL) [Concomitant]

REACTIONS (1)
  - Pancreatitis [None]
